FAERS Safety Report 8679020 (Version 2)
Quarter: 2012Q4

REPORT INFORMATION
  Report Type: 
  Country: US (occurrence: US)
  Receive Date: 20120724
  Receipt Date: 20120907
  Transmission Date: 20130627
  Serious: No
  Sender: FDA-Public Use
  Company Number: US-BIOGENIDEC-2012BI025813

PATIENT
  Age: 49 Year
  Sex: Female

DRUGS (4)
  1. TYSABRI [Suspect]
     Indication: MULTIPLE SCLEROSIS
     Route: 042
     Dates: start: 20080911, end: 20111208
  2. TYSABRI [Suspect]
     Indication: MULTIPLE SCLEROSIS
     Route: 042
     Dates: end: 20120101
  3. REBIF [Concomitant]
     Indication: MULTIPLE SCLEROSIS
     Dates: start: 201201
  4. COPAXONE [Concomitant]
     Indication: MULTIPLE SCLEROSIS
     Dates: start: 201203

REACTIONS (2)
  - Depression [Recovered/Resolved]
  - Injection site reaction [Not Recovered/Not Resolved]
